FAERS Safety Report 8609660-2 (Version None)
Quarter: 2012Q3

REPORT INFORMATION
  Report Type: 
  Country: None (occurrence: None)
  Receive Date: 20120821
  Receipt Date: 20120815
  Transmission Date: 20120928
  Serious: Yes (Hospitalization)
  Sender: FDA-Public Use
  Company Number: US-ACTELION-A-NJ2012-69815

PATIENT
  Age: 41 Year
  Sex: Female

DRUGS (3)
  1. VENTAVIS [Suspect]
     Indication: PULMONARY ARTERIAL HYPERTENSION
     Dosage: 5 MCG, UNK
     Route: 055
     Dates: start: 20120701
  2. VENTAVIS [Suspect]
     Dosage: 2.5 MCG, UNK
     Route: 055
     Dates: start: 20120626
  3. TRACLEER [Suspect]
     Indication: PULMONARY ARTERIAL HYPERTENSION
     Dosage: UNK
     Route: 048
     Dates: start: 20120814

REACTIONS (4)
  - VOMITING [None]
  - DIARRHOEA [None]
  - NAUSEA [None]
  - CHEST PAIN [None]
